FAERS Safety Report 17541023 (Version 2)
Quarter: 2020Q2

REPORT INFORMATION
  Report Type: Spontaneous
  Country: DE (occurrence: DE)
  Receive Date: 20200314
  Receipt Date: 20200506
  Transmission Date: 20200713
  Serious: Yes (Hospitalization, Other)
  Sender: FDA-Public Use
  Company Number: DE-009507513-2003DEU002895

PATIENT
  Sex: Male

DRUGS (3)
  1. ZOCOR [Suspect]
     Active Substance: SIMVASTATIN
     Indication: BLOOD CHOLESTEROL INCREASED
     Dosage: UNK
     Route: 048
  2. ZOCOR [Suspect]
     Active Substance: SIMVASTATIN
     Indication: BLOOD CHOLESTEROL INCREASED
     Dosage: UNK
     Route: 048
     Dates: start: 1995
  3. BEZAFIBRATE [Suspect]
     Active Substance: BEZAFIBRATE
     Indication: BLOOD CHOLESTEROL INCREASED
     Dosage: UNK
     Dates: start: 1995

REACTIONS (18)
  - Cholelithiasis [Unknown]
  - Muscle atrophy [Unknown]
  - Blood glucose decreased [Unknown]
  - Biliary colic [Unknown]
  - Seborrhoea [Unknown]
  - Blood glucose abnormal [Unknown]
  - Contusion [Unknown]
  - Adverse event [Unknown]
  - Blood glucose increased [Unknown]
  - Type 2 diabetes mellitus [Unknown]
  - Tremor [Unknown]
  - Discomfort [Unknown]
  - Fatigue [Unknown]
  - Skin discolouration [Unknown]
  - Drug ineffective [Unknown]
  - Laboratory test abnormal [Unknown]
  - Malaise [Unknown]
  - Blood triglycerides increased [Unknown]

NARRATIVE: CASE EVENT DATE: 2014
